FAERS Safety Report 20779721 (Version 2)
Quarter: 2022Q2

REPORT INFORMATION
  Report Type: Spontaneous
  Country: US (occurrence: US)
  Receive Date: 20220503
  Receipt Date: 20220518
  Transmission Date: 20220721
  Serious: No
  Sender: FDA-Public Use
  Company Number: US-PFIZER INC-202200634636

PATIENT
  Age: 61 Year
  Sex: Male
  Weight: 65.32 kg

DRUGS (1)
  1. PAXLOVID [Suspect]
     Active Substance: NIRMATRELVIR\RITONAVIR
     Indication: COVID-19 treatment
     Dosage: 3 DF, 2X/DAY (5 DAYS OF DOSES; 3 PILLS TWICE A DAY BY MOUTH, 2 NIRMATRELVIR AND 1 RITONAVIR)
     Route: 048
     Dates: start: 20220427

REACTIONS (2)
  - Dysgeusia [Recovered/Resolved]
  - Product taste abnormal [Recovered/Resolved]

NARRATIVE: CASE EVENT DATE: 20220427
